FAERS Safety Report 10224443 (Version 1)
Quarter: 2014Q2

REPORT INFORMATION
  Report Type: Spontaneous
  Country: US (occurrence: US)
  Receive Date: 20140609
  Receipt Date: 20140609
  Transmission Date: 20141212
  Serious: No
  Sender: FDA-Public Use
  Company Number: US-PFIZER INC-2014155303

PATIENT
  Age: 59 Year
  Sex: Female
  Weight: 72.56 kg

DRUGS (3)
  1. LYRICA [Suspect]
     Indication: MULTIPLE SCLEROSIS
     Dosage: 225 MG, 1X/DAY
     Route: 048
     Dates: start: 2014
  2. LYRICA [Suspect]
     Indication: PAIN
  3. AMPYRA [Concomitant]
     Dosage: 10 MG, 2X/DAY

REACTIONS (1)
  - Memory impairment [Unknown]
